FAERS Safety Report 4504298-0 (Version None)
Quarter: 2004Q4

REPORT INFORMATION
  Report Type: 
  Country: None (occurrence: None)
  Receive Date: 20041118
  Receipt Date: 20041112
  Transmission Date: 20050328
  Serious: Yes (Death)
  Sender: FDA-Public Use
  Company Number: US-AMGEN-US099511

PATIENT
  Sex: Female
  Weight: 49.5 kg

DRUGS (1)
  1. EPOGEN [Suspect]
     Indication: RENAL FAILURE CHRONIC

REACTIONS (2)
  - ABDOMINAL PAIN UPPER [None]
  - MESENTERIC OCCLUSION [None]
